FAERS Safety Report 6988230-6 (Version None)
Quarter: 2010Q3

REPORT INFORMATION
  Report Type: 
  Country: None (occurrence: None)
  Receive Date: 20100916
  Receipt Date: 20100906
  Transmission Date: 20110219
  Serious: Yes (Other)
  Sender: FDA-Public Use
  Company Number: JP-ROCHE-726749

PATIENT
  Sex: Female
  Weight: 56 kg

DRUGS (12)
  1. TOCILIZUMAB [Suspect]
     Indication: RHEUMATOID ARTHRITIS
     Route: 041
     Dates: start: 20080627, end: 20080627
  2. TOCILIZUMAB [Suspect]
     Route: 041
     Dates: start: 20080725, end: 20080725
  3. TOCILIZUMAB [Suspect]
     Route: 041
     Dates: start: 20080822, end: 20080822
  4. TOCILIZUMAB [Suspect]
     Route: 041
     Dates: start: 20080919, end: 20080919
  5. TOCILIZUMAB [Suspect]
     Route: 041
     Dates: start: 20081017, end: 20081017
  6. TOCILIZUMAB [Suspect]
     Route: 041
     Dates: start: 20081205
  7. ISCOTIN [Suspect]
     Indication: ANTIBIOTIC PROPHYLAXIS
     Dosage: FORM: PERORAL AGENT
     Route: 048
     Dates: start: 20080822
  8. MAGNESIUM OXIDE [Concomitant]
     Dosage: FORM: POWDERED MEDICINE
     Route: 048
  9. PURSENNID [Concomitant]
     Route: 048
     Dates: end: 20080918
  10. FOSAMAX [Concomitant]
     Dosage: DRUG NAME: FOSAMAC 35 MG (ALENDRONATE SODIUM HYDRATE)
     Route: 048
     Dates: end: 20081204
  11. ACHROMYCIN [Concomitant]
     Dosage: FORM: LOZENGE. NOTE: THE SINGLE USE DOSAGE IS UNCERTAIN.
     Route: 048
     Dates: end: 20081016
  12. BENET [Concomitant]
     Route: 048
     Dates: start: 20081205

REACTIONS (4)
  - CATARACT [None]
  - HEPATIC FUNCTION ABNORMAL [None]
  - HYPERCHOLESTEROLAEMIA [None]
  - MACULOPATHY [None]
